FAERS Safety Report 14928645 (Version 1)
Quarter: 2018Q2

REPORT INFORMATION
  Report Type: Spontaneous
  Country: PL (occurrence: PL)
  Receive Date: 20180523
  Receipt Date: 20180523
  Transmission Date: 20180711
  Serious: Yes (Death)
  Sender: FDA-Public Use
  Company Number: PL-PFIZER INC-2018208547

PATIENT
  Age: 71 Year
  Sex: Male
  Weight: 65 kg

DRUGS (2)
  1. GEMCITABINE [Suspect]
     Active Substance: GEMCITABINE\GEMCITABINE HYDROCHLORIDE
     Indication: BLADDER CANCER
     Dosage: 1000 MG/M2, CYCLIC (DAYS 1 AND 8 EVERY 21 DAYS)
     Route: 042
     Dates: start: 201801, end: 201801
  2. CARBOPLATIN. [Suspect]
     Active Substance: CARBOPLATIN
     Indication: BLADDER CANCER
     Dosage: UNK (AUC 5)
     Route: 042
     Dates: start: 201801, end: 201801

REACTIONS (4)
  - Product use in unapproved indication [Unknown]
  - Agranulocytosis [Fatal]
  - Neoplasm progression [Fatal]
  - Neutropenia [Fatal]

NARRATIVE: CASE EVENT DATE: 20180124
